FAERS Safety Report 5442107-6 (Version None)
Quarter: 2007Q3

REPORT INFORMATION
  Report Type: 
  Country: None (occurrence: None)
  Receive Date: 20070904
  Receipt Date: 20070824
  Transmission Date: 20080115
  Serious: Yes (Hospitalization)
  Sender: FDA-Public Use
  Company Number: GB-ROCHE-514186

PATIENT
  Age: 39 Year
  Sex: Male

DRUGS (14)
  1. CEFTRIAXONE SODIUM [Suspect]
     Indication: CELLULITIS
     Route: 042
     Dates: start: 20070727, end: 20070728
  2. BUSCOPAN [Concomitant]
  3. CHLORPHENIRAMINE TAB [Concomitant]
     Route: 048
  4. DEXAMETHASONE 0.5MG TAB [Concomitant]
     Route: 048
  5. FRUSEMIDE [Concomitant]
     Route: 048
  6. GLICLAZIDE [Concomitant]
     Route: 048
     Dates: end: 20070726
  7. HALOPERIDOL [Concomitant]
     Indication: SEDATION
     Route: 048
  8. LOPERAMIDE HCL [Concomitant]
     Route: 048
  9. MIRTAZAPINE [Concomitant]
     Indication: DEPRESSION
     Route: 048
  10. NOVORAPID [Concomitant]
     Route: 058
     Dates: start: 20070727
  11. OMEPRAZOLE [Concomitant]
     Route: 048
  12. PARACETAMOL [Concomitant]
     Route: 048
  13. TEMAZEPAM [Concomitant]
     Indication: SEDATION
     Route: 048
  14. TRAMADOL HCL [Concomitant]
     Route: 048

REACTIONS (2)
  - ERYTHEMA [None]
  - LIVEDO RETICULARIS [None]
